FAERS Safety Report 5123738-X (Version None)
Quarter: 2006Q3

REPORT INFORMATION
  Report Type: 
  Country: None (occurrence: None)
  Receive Date: 20060811
  Receipt Date: 20060517
  Transmission Date: 20061208
  Serious: No
  Sender: FDA-Public Use
  Company Number: S06-USA-02011-01

PATIENT
  Age: 36 Year
  Sex: Female

DRUGS (8)
  1. NAMENDA [Suspect]
     Indication: GENERALISED ANXIETY DISORDER
     Dosage: 5 MG QD PO
     Route: 048
     Dates: start: 20060302, end: 20060308
  2. NAMENDA [Suspect]
     Indication: GENERALISED ANXIETY DISORDER
     Dosage: 5 MG BID PO
     Route: 048
     Dates: start: 20040309, end: 20040315
  3. NAMENDA [Suspect]
     Indication: GENERALISED ANXIETY DISORDER
     Dosage: 15 MG QD PO
     Route: 048
     Dates: start: 20040316, end: 20040322
  4. NAMENDA [Suspect]
     Indication: GENERALISED ANXIETY DISORDER
     Dosage: 10 MG BID PO
     Route: 048
     Dates: start: 20040323, end: 20040401
  5. NAMENDA [Suspect]
     Indication: GENERALISED ANXIETY DISORDER
     Dosage: 15 MG QD PO
     Route: 048
     Dates: start: 20040401
  6. AMBIEN [Concomitant]
  7. KLONOPIN [Concomitant]
  8. XANAX [Concomitant]

REACTIONS (4)
  - CONSTIPATION [None]
  - HEADACHE [None]
  - PSYCHOMOTOR HYPERACTIVITY [None]
  - THERAPEUTIC RESPONSE UNEXPECTED [None]
